FAERS Safety Report 9412890 (Version 1)
Quarter: 2013Q3

REPORT INFORMATION
  Report Type: Spontaneous
  Country: LV (occurrence: LV)
  Receive Date: 20130722
  Receipt Date: 20130722
  Transmission Date: 20140515
  Serious: Yes (Hospitalization)
  Sender: FDA-Public Use
  Company Number: LV-TEVA-418992ISR

PATIENT
  Age: 76 Year
  Sex: Male
  Weight: 86 kg

DRUGS (4)
  1. SUMAMED [Suspect]
     Indication: PNEUMONIA
     Dosage: FIRST DAY 500MG X 2, SECOND DAY 500MG X 1
     Route: 048
     Dates: start: 20130705, end: 20130706
  2. IMDUR TABLETS 60MG [Concomitant]
     Dosage: CONTINUALLY
     Route: 048
  3. BETALOC ZOK [Concomitant]
     Dosage: CONTINUALLY
     Route: 048
  4. MONOZIDE 20 MG/12,5 MG [Concomitant]
     Dosage: 1TBL 1X DAY CONTINUALLY
     Route: 048

REACTIONS (2)
  - Atrial fibrillation [Recovering/Resolving]
  - Leukopenia [Recovering/Resolving]
